FAERS Safety Report 9570861 (Version 1)
Quarter: 2013Q4

REPORT INFORMATION
  Report Type: Spontaneous
  Country: FR (occurrence: FR)
  Receive Date: 20131001
  Receipt Date: 20131001
  Transmission Date: 20140711
  Serious: Yes (Hospitalization)
  Sender: FDA-Public Use
  Company Number: FR-ROCHE-1282391

PATIENT
  Age: 18 Year
  Sex: Female

DRUGS (5)
  1. VALIUM [Suspect]
     Indication: BACK PAIN
     Route: 041
     Dates: start: 20130906, end: 20130906
  2. THIOCOLCHICOSIDE [Suspect]
     Indication: BACK PAIN
     Route: 048
     Dates: start: 20130905, end: 20130909
  3. PROFENID [Suspect]
     Indication: BACK PAIN
     Dosage: 100 MG
     Route: 041
     Dates: end: 20130906
  4. IXPRIM [Suspect]
     Indication: BACK PAIN
     Route: 048
     Dates: start: 20130907, end: 20130908
  5. PROFENID [Suspect]
     Indication: BACK PAIN
     Route: 048
     Dates: start: 20130907, end: 20130909

REACTIONS (3)
  - Headache [Recovered/Resolved]
  - Photophobia [Recovered/Resolved]
  - Sensorimotor disorder [Recovered/Resolved]
